FAERS Safety Report 6107668-2 (Version None)
Quarter: 2009Q1

REPORT INFORMATION
  Report Type: 
  Country: None (occurrence: None)
  Receive Date: 20090302
  Receipt Date: 20080612
  Transmission Date: 20090719
  Serious: Yes (Disabling, Other)
  Sender: FDA-Public Use
  Company Number: ALA_00081_2008

PATIENT
  Sex: Female

DRUGS (4)
  1. REGLAN [Suspect]
     Indication: DIABETIC GASTROPARESIS
     Dosage: DF ORAL
     Route: 048
     Dates: start: 20030501, end: 20050301
  2. REGLAN [Suspect]
     Indication: GASTROINTESTINAL DISORDER
     Dosage: DF ORAL
     Route: 048
     Dates: start: 20030501, end: 20050301
  3. REGLAN [Suspect]
     Indication: GASTROOESOPHAGEAL REFLUX DISEASE
     Dosage: DF ORAL
     Route: 048
     Dates: start: 20030501, end: 20050301
  4. REGLAN [Suspect]
     Indication: IRRITABLE BOWEL SYNDROME
     Dosage: DF ORAL
     Route: 048
     Dates: start: 20030501, end: 20050301

REACTIONS (2)
  - DYSTONIA [None]
  - TARDIVE DYSKINESIA [None]
